FAERS Safety Report 14320222 (Version 3)
Quarter: 2018Q1

REPORT INFORMATION
  Report Type: Other
  Country: FR (occurrence: FR)
  Receive Date: 20171222
  Receipt Date: 20180117
  Transmission Date: 20180509
  Serious: Yes (Death, Other)
  Sender: FDA-Public Use
  Company Number: FR-RARE DISEASE THERAPEUTICS, INC.-2037685

PATIENT
  Age: 12 Month
  Sex: Female
  Weight: 9.5 kg

DRUGS (7)
  1. PURIXAN [Suspect]
     Active Substance: MERCAPTOPURINE
     Indication: ACUTE LYMPHOCYTIC LEUKAEMIA
     Dates: start: 20121015
  2. ASPARAGINASE [Suspect]
     Active Substance: ASPARAGINASE
     Dates: start: 201301
  3. KALINOX [Concomitant]
     Active Substance: NITROUS OXIDE
  4. CYCLOPHOSPHAMIDE. [Suspect]
     Active Substance: CYCLOPHOSPHAMIDE
     Dates: start: 20121015
  5. CYTARABINE. [Suspect]
     Active Substance: CYTARABINE
     Dates: start: 20121015
  6. METHOTREXATE. [Suspect]
     Active Substance: METHOTREXATE
     Dates: start: 20121107
  7. HYDROCORTISONE. [Suspect]
     Active Substance: HYDROCORTISONE
     Dates: start: 20121025

REACTIONS (1)
  - Encephalopathy [Fatal]

NARRATIVE: CASE EVENT DATE: 201301
